FAERS Safety Report 4281949-X (Version None)
Quarter: 2004Q1

REPORT INFORMATION
  Report Type: 
  Country: None (occurrence: None)
  Receive Date: 20040128
  Receipt Date: 20040116
  Transmission Date: 20041129
  Serious: Yes (Hospitalization)
  Sender: FDA-Public Use
  Company Number: 200400974

PATIENT
  Age: 10 Month
  Sex: Male
  Weight: 8 kg

DRUGS (1)
  1. TYLENOL [Suspect]
     Indication: PYREXIA
     Dosage: 200 MG Q4H PO
     Route: 048
     Dates: start: 20040104, end: 20040108

REACTIONS (2)
  - ALANINE AMINOTRANSFERASE INCREASED [None]
  - ASPARTATE AMINOTRANSFERASE INCREASED [None]
